FAERS Safety Report 25850439 (Version 2)
Quarter: 2025Q4

REPORT INFORMATION
  Report Type: Spontaneous
  Country: US (occurrence: US)
  Receive Date: 20250926
  Receipt Date: 20251003
  Transmission Date: 20260118
  Serious: No
  Sender: Haleon PLC
  Company Number: US-HALEON-2264503

PATIENT
  Age: 35 Year
  Sex: Female

DRUGS (4)
  1. ADVIL [Suspect]
     Active Substance: IBUPROFEN
     Indication: Pain
     Dosage: 2-CAPSULES
  2. ADVIL [Suspect]
     Active Substance: IBUPROFEN
     Indication: Pain in extremity
  3. ADVIL [Suspect]
     Active Substance: IBUPROFEN
     Indication: Migraine
  4. ADVIL [Suspect]
     Active Substance: IBUPROFEN
     Indication: Dysmenorrhoea

REACTIONS (1)
  - Drug effect less than expected [Unknown]
